FAERS Safety Report 19998107 (Version 1)
Quarter: 2021Q4

REPORT INFORMATION
  Report Type: Spontaneous
  Country: FR (occurrence: FR)
  Receive Date: 20211026
  Receipt Date: 20211026
  Transmission Date: 20220303
  Serious: Yes (Death, Life-Threatening, Hospitalization, Other)
  Sender: FDA-Public Use
  Company Number: FR-MLMSERVICE-20210624-2967835-1

PATIENT
  Sex: Female
  Weight: 2.4 kg

DRUGS (2)
  1. BUPRENORPHINE [Suspect]
     Active Substance: BUPRENORPHINE
     Indication: Drug dependence
     Dosage: EXCESSIVE
     Route: 064
  2. BUPRENORPHINE [Suspect]
     Active Substance: BUPRENORPHINE
     Dosage: 8 MILLIGRAM, QD
     Route: 064

REACTIONS (5)
  - Low birth weight baby [Fatal]
  - Placental infarction [Fatal]
  - Placental disorder [Fatal]
  - Hypoperfusion [Fatal]
  - Foetal exposure during pregnancy [Fatal]
